FAERS Safety Report 23069498 (Version 1)
Quarter: 2023Q4

REPORT INFORMATION
  Report Type: Spontaneous
  Country: US (occurrence: US)
  Receive Date: 20231016
  Receipt Date: 20231016
  Transmission Date: 20240109
  Serious: No
  Sender: FDA-Public Use
  Company Number: US-MYLANLABS-2023M1106075

PATIENT
  Sex: Female
  Weight: 67.13 kg

DRUGS (1)
  1. ESTRADIOL [Suspect]
     Active Substance: ESTRADIOL
     Indication: Menopause
     Dosage: 0.01 PERCENT, BIWEEKLY
     Route: 067

REACTIONS (3)
  - Device breakage [Unknown]
  - Product quality issue [Unknown]
  - Wrong technique in device usage process [Unknown]
